FAERS Safety Report 9263449 (Version 1)
Quarter: 2013Q2

REPORT INFORMATION
  Report Type: Spontaneous
  Country: US (occurrence: US)
  Receive Date: 20130430
  Receipt Date: 20130430
  Transmission Date: 20140414
  Serious: Yes (Other)
  Sender: FDA-Public Use
  Company Number: US-ROCHE-1217748

PATIENT
  Sex: Female

DRUGS (3)
  1. HERCEPTIN [Suspect]
     Indication: BREAST CANCER STAGE I
     Route: 065
     Dates: start: 201208
  2. CARBOPLATIN [Suspect]
     Indication: BREAST CANCER STAGE I
     Route: 065
     Dates: start: 201208
  3. TAXOTERE [Suspect]
     Indication: BREAST CANCER STAGE I
     Route: 065
     Dates: start: 201208

REACTIONS (9)
  - Vitreous detachment [Unknown]
  - Retinal tear [Unknown]
  - Gastrointestinal disorder [Unknown]
  - Dizziness [Unknown]
  - Inner ear disorder [Unknown]
  - Gait disturbance [Unknown]
  - Hyperacusis [Unknown]
  - Ear discomfort [Unknown]
  - Middle ear disorder [Unknown]
